FAERS Safety Report 9270151 (Version 1)
Quarter: 2013Q2

REPORT INFORMATION
  Report Type: Spontaneous
  Country: US (occurrence: US)
  Receive Date: 20130503
  Receipt Date: 20130503
  Transmission Date: 20140414
  Serious: No
  Sender: FDA-Public Use
  Company Number: US-ASTRAZENECA-2013SE26944

PATIENT
  Age: 53 Year
  Sex: Male

DRUGS (3)
  1. BRILINTA [Suspect]
     Indication: STENT PLACEMENT
     Dosage: LOADING DOSE
     Route: 048
     Dates: start: 20130305
  2. BRILINTA [Suspect]
     Indication: STENT PLACEMENT
     Route: 048
     Dates: end: 201304
  3. ASPIRIN [Concomitant]

REACTIONS (2)
  - Chest discomfort [Unknown]
  - Dyspnoea [Unknown]
